FAERS Safety Report 7159229-4 (Version None)
Quarter: 2010Q4

REPORT INFORMATION
  Report Type: 
  Country: None (occurrence: None)
  Receive Date: 20101214
  Receipt Date: 20100810
  Transmission Date: 20110411
  Serious: No
  Sender: FDA-Public Use
  Company Number: US-ASTRAZENECA-2010SE37480

PATIENT
  Age: 34 Year
  Sex: Female

DRUGS (2)
  1. CRESTOR [Suspect]
     Indication: BLOOD CHOLESTEROL INCREASED
     Route: 048
     Dates: start: 20100501
  2. SEASONIQUE [Concomitant]
     Indication: ORAL CONTRACEPTION

REACTIONS (3)
  - ABDOMINAL PAIN [None]
  - BLOOD TRIGLYCERIDES INCREASED [None]
  - VAGINAL HAEMORRHAGE [None]
